FAERS Safety Report 22524996 (Version 1)
Quarter: 2023Q2

REPORT INFORMATION
  Report Type: Spontaneous
  Country: US (occurrence: US)
  Receive Date: 20230606
  Receipt Date: 20230606
  Transmission Date: 20230722
  Serious: No
  Sender: FDA-Public Use
  Company Number: US-SANOFI-01639189

PATIENT
  Age: 53 Year
  Sex: Female

DRUGS (1)
  1. MULTAQ [Suspect]
     Active Substance: DRONEDARONE
     Indication: Atrial fibrillation
     Dosage: 400 MG BID AND DRUG TREATMENT DURATION:1-1/2 MONTHS

REACTIONS (4)
  - Rash pruritic [Unknown]
  - Photosensitivity reaction [Unknown]
  - Rash erythematous [Unknown]
  - Rash papular [Unknown]

NARRATIVE: CASE EVENT DATE: 20230601
